FAERS Safety Report 12834955 (Version 2)
Quarter: 2017Q1

REPORT INFORMATION
  Report Type: Spontaneous
  Country: US (occurrence: US)
  Receive Date: 20161010
  Receipt Date: 20170120
  Transmission Date: 20170428
  Serious: No
  Sender: FDA-Public Use
  Company Number: US-ASTRAZENECA-2016SF06002

PATIENT
  Sex: Female

DRUGS (2)
  1. TUDORZA PRESSAIR [Suspect]
     Active Substance: ACLIDINIUM BROMIDE
     Dosage: 400 MCG ONE INHALATION TWICE A DAY
     Route: 055
     Dates: start: 201505
  2. TUDORZA PRESSAIR [Suspect]
     Active Substance: ACLIDINIUM BROMIDE
     Dosage: 400 MCG 60 METERED DOSE INHALER
     Route: 055
     Dates: start: 20160916

REACTIONS (2)
  - Product quality issue [Unknown]
  - Dyspnoea [Unknown]
